FAERS Safety Report 23429943 (Version 2)
Quarter: 2024Q1

REPORT INFORMATION
  Report Type: Report from Study
  Country: US (occurrence: None)
  Receive Date: 20240122
  Receipt Date: 20240305
  Transmission Date: 20240409
  Serious: Yes (Other)
  Sender: FDA-Public Use
  Company Number: 2024A016252

PATIENT
  Age: 61 Year
  Sex: Male
  Weight: 102.1 kg

DRUGS (1)
  1. FARXIGA [Suspect]
     Active Substance: DAPAGLIFLOZIN PROPANEDIOL
     Indication: Renal disorder
     Dosage: 10.0MG UNKNOWN
     Route: 048
     Dates: start: 202303

REACTIONS (5)
  - Diabetic retinopathy [Unknown]
  - Tractional retinal detachment [Unknown]
  - Cataract [Unknown]
  - Glaucoma [Unknown]
  - Pseudophakia [Unknown]
